FAERS Safety Report 4588713-2 (Version None)
Quarter: 2005Q1

REPORT INFORMATION
  Report Type: 
  Country: None (occurrence: None)
  Receive Date: 20050214
  Receipt Date: 20050214
  Transmission Date: 20050727
  Serious: Yes (Other)
  Sender: FDA-Public Use
  Company Number: None

PATIENT
  Age: 67 Year
  Sex: Female
  Weight: 68.0396 kg

DRUGS (7)
  1. CLONAZEPAM [Suspect]
     Indication: BURNING SENSATION
     Dosage: ONE TABLET AT BEDTIME
     Dates: start: 20050105, end: 20050108
  2. CLONAZEPAM [Suspect]
     Indication: MUSCLE SPASMS
     Dosage: ONE TABLET AT BEDTIME
     Dates: start: 20050105, end: 20050108
  3. CLONAZEPAM [Suspect]
     Indication: NEURALGIA
     Dosage: ONE TABLET AT BEDTIME
     Dates: start: 20050105, end: 20050108
  4. HYDROCODONE [Concomitant]
  5. TOPAMAX [Concomitant]
  6. VITAMINS [Concomitant]
  7. CALCIUM GLUCONATE [Concomitant]

REACTIONS (2)
  - DRUG INEFFECTIVE [None]
  - PHARMACEUTICAL PRODUCT COMPLAINT [None]
